FAERS Safety Report 21284804 (Version 1)
Quarter: 2022Q3

REPORT INFORMATION
  Report Type: Spontaneous
  Country: US (occurrence: US)
  Receive Date: 20220902
  Receipt Date: 20220902
  Transmission Date: 20221027
  Serious: No
  Sender: FDA-Public Use
  Company Number: ENDG22-01208

PATIENT
  Age: 7 Decade
  Sex: Male

DRUGS (2)
  1. PREDNISONE [Suspect]
     Active Substance: PREDNISONE
     Indication: Product used for unknown indication
     Dosage: UNK UNKNOWN, UNKNOWN (HIGH AMOUNTS)
     Route: 065
     Dates: start: 2020
  2. TACROLIMUS [Concomitant]
     Active Substance: TACROLIMUS
     Indication: Immunosuppression
     Dosage: 2 MG, BID (2 MG IN AM AND 2 MG AT NIGHT FOR LIFE TIME)
     Route: 065
     Dates: start: 2020

REACTIONS (2)
  - Taste disorder [Unknown]
  - Anosmia [Recovering/Resolving]

NARRATIVE: CASE EVENT DATE: 20200101
